FAERS Safety Report 21664238 (Version 1)
Quarter: 2022Q4

REPORT INFORMATION
  Report Type: Spontaneous
  Country: US (occurrence: US)
  Receive Date: 20221130
  Receipt Date: 20221130
  Transmission Date: 20230112
  Serious: No
  Sender: FDA-Public Use
  Company Number: US-002147023-NVSC2022US275765

PATIENT
  Sex: Female

DRUGS (3)
  1. FEMARA [Suspect]
     Active Substance: LETROZOLE
     Indication: Interstitial lung disease
     Dosage: 2.5 MG, QD
     Route: 065
  2. FEMARA [Suspect]
     Active Substance: LETROZOLE
     Indication: Pneumonitis
  3. IBRANCE [Suspect]
     Active Substance: PALBOCICLIB
     Indication: Metastases to bone
     Dosage: 100 MG (DAY 1-21 OF EACH 28 DAY CYCLE)
     Route: 065

REACTIONS (1)
  - Tooth disorder [Unknown]
